FAERS Safety Report 21807784 (Version 1)
Quarter: 2023Q1

REPORT INFORMATION
  Report Type: Spontaneous
  Country: None (occurrence: US)
  Receive Date: 20230103
  Receipt Date: 20230103
  Transmission Date: 20230417
  Serious: No
  Sender: FDA-Public Use
  Company Number: US-Yung Shin Pharmaceutical Ind.  Co., Ltd.-2136349

PATIENT
  Age: 49 Year
  Sex: Female

DRUGS (1)
  1. CEFACLOR [Suspect]
     Active Substance: CEFACLOR
     Route: 048

REACTIONS (1)
  - Rash [Unknown]
